FAERS Safety Report 10674098 (Version 1)
Quarter: 2014Q4

REPORT INFORMATION
  Report Type: Spontaneous
  Country: IN (occurrence: None)
  Receive Date: 20141222
  Receipt Date: 20141222
  Transmission Date: 20150529
  Serious: Yes (Hospitalization)
  Sender: FDA-Public Use
  Company Number: 2014COR00145

PATIENT
  Age: 30 Year
  Sex: Male

DRUGS (2)
  1. ALPRAZOLAM (ALPRAZOLAM) [Suspect]
     Active Substance: ALPRAZOLAM
     Dosage: 5 MG, 1X/DAY
  2. ALCOHOL. [Suspect]
     Active Substance: ALCOHOL

REACTIONS (7)
  - Posturing [None]
  - Hallucination, auditory [None]
  - Drug withdrawal syndrome [None]
  - Fear [None]
  - Catatonia [None]
  - Drug dependence [None]
  - Aggression [None]
